FAERS Safety Report 6368723-5 (Version None)
Quarter: 2009Q3

REPORT INFORMATION
  Report Type: 
  Country: None (occurrence: None)
  Receive Date: 20090917
  Receipt Date: 20090917
  Transmission Date: 20100115
  Serious: Yes (Other)
  Sender: FDA-Public Use
  Company Number: None

PATIENT
  Age: 61 Year
  Sex: Female
  Weight: 71.6683 kg

DRUGS (1)
  1. LIPOFEN [Suspect]
     Indication: BLOOD TRIGLYCERIDES INCREASED
     Dosage: 1 CAP ONCE A DAY
     Dates: start: 20090813, end: 20090902

REACTIONS (2)
  - IMPAIRED WORK ABILITY [None]
  - MEMORY IMPAIRMENT [None]
